FAERS Safety Report 4528775-1 (Version None)
Quarter: 2004Q4

REPORT INFORMATION
  Report Type: 
  Country: None (occurrence: None)
  Receive Date: 20041216
  Receipt Date: 20041209
  Transmission Date: 20050328
  Serious: Yes (Disabling)
  Sender: FDA-Public Use
  Company Number: US-ROCHE-388991

PATIENT
  Age: 17 Year
  Sex: Female

DRUGS (2)
  1. ACCUTANE [Suspect]
     Indication: ACNE
     Route: 048
     Dates: start: 20000406, end: 20000907
  2. BIRTH CONTROL PILL [Concomitant]
     Indication: CONTRACEPTION
     Route: 048

REACTIONS (4)
  - ARTHRALGIA [None]
  - CEREBROVASCULAR DISORDER [None]
  - CONVULSION [None]
  - SCOLIOSIS [None]
